FAERS Safety Report 9013288 (Version 2)
Quarter: 2013Q3

REPORT INFORMATION
  Report Type: Report from Study
  Country: JP (occurrence: JP)
  Receive Date: 20130115
  Receipt Date: 20130726
  Transmission Date: 20140515
  Serious: Yes (Other)
  Sender: FDA-Public Use
  Company Number: JP-009507513-2012SP026683

PATIENT
  Age: 64 Year
  Sex: Male
  Weight: 72 kg

DRUGS (31)
  1. PEGINTRON [Suspect]
     Indication: CHRONIC HEPATITIS C
     Dosage: 1.5 MICROGRAM PER KILOGRAM, QW
     Route: 058
     Dates: start: 20120131
  2. REBETOL [Suspect]
     Indication: CHRONIC HEPATITIS C
     Dosage: 600 MG, QD
     Route: 048
     Dates: start: 20120131
  3. TELAVIC [Suspect]
     Indication: CHRONIC HEPATITIS C
     Dosage: 2250 MG, QD
     Route: 048
     Dates: start: 20120131, end: 20120227
  4. TELAVIC [Suspect]
     Dosage: 1500 MG, QD
     Route: 048
     Dates: start: 20120228, end: 20120319
  5. GLYCYRON [Concomitant]
     Indication: CHRONIC HEPATITIS C
     Dosage: COMBINATION TABLETS, IN THREE DOSES
     Route: 048
     Dates: end: 20120206
  6. APORASNON [Concomitant]
     Indication: HYPERTENSION
     Dosage: 25 MG, QD
     Route: 048
     Dates: end: 20120206
  7. ACTOS [Concomitant]
     Indication: DIABETES MELLITUS
     Dosage: 30 MG, QD
     Route: 048
     Dates: end: 20120206
  8. ACTOS [Concomitant]
     Dosage: 30 MG, QD
     Route: 048
     Dates: start: 20120207, end: 20120220
  9. ACTOS [Concomitant]
     Dosage: 30 MG, QD
     Route: 048
     Dates: start: 20120306, end: 20120402
  10. ACTOS [Concomitant]
     Dosage: 30 MG, QD
     Route: 048
     Dates: start: 20120410
  11. CORINAEL CR [Concomitant]
     Indication: HYPERTENSION
     Dosage: 40 MG, QD
     Route: 048
     Dates: end: 20120206
  12. AMARYL [Concomitant]
     Indication: DIABETES MELLITUS
     Dosage: 2 MG, QD
     Route: 048
     Dates: end: 20120220
  13. AMARYL [Concomitant]
     Dosage: 2 MG, QD
     Route: 048
     Dates: start: 20120306, end: 20120402
  14. AMARYL [Concomitant]
     Dosage: 2 MG, QD
     Route: 048
     Dates: start: 20120410
  15. THIAMINE HYDROCHLORIDE [Concomitant]
     Indication: PROPHYLAXIS
     Dosage: FORMULATION:POR
     Route: 048
     Dates: end: 20120220
  16. THIAMINE HYDROCHLORIDE [Concomitant]
     Indication: PROPHYLAXIS
     Dosage: FORMULATION:POR
     Route: 048
     Dates: start: 20120306, end: 20120402
  17. THIAMINE HYDROCHLORIDE [Concomitant]
     Indication: PROPHYLAXIS
     Dosage: FORMULATION:POR
     Route: 048
     Dates: start: 20120410
  18. EVAMYL [Concomitant]
     Indication: PROPHYLAXIS
     Dosage: 1 MG PER DAY, PRN
     Route: 048
  19. MUCOSTA [Concomitant]
     Indication: PROPHYLAXIS
     Dosage: 100 MG PER DAY, PRN
     Route: 048
  20. VOGLIBOSE OD [Concomitant]
     Indication: DIABETES MELLITUS
     Dosage: 0.6 MG, QD
     Route: 048
     Dates: end: 20120206
  21. ALDACTONE A [Concomitant]
     Indication: HYPERTENSION
     Dosage: 25 MG, QD
     Route: 048
     Dates: start: 20120207, end: 20120220
  22. BASEN OD [Concomitant]
     Indication: DIABETES MELLITUS
     Dosage: 0.6 MG, QD
     Route: 048
     Dates: start: 20120207, end: 20120220
  23. BASEN OD [Concomitant]
     Dosage: 0.6 MG, QD
     Route: 048
     Dates: start: 20120327
  24. ADALAT CR [Concomitant]
     Indication: HYPERTENSION
     Dosage: 40 MG, QD
     Route: 048
     Dates: start: 20120207, end: 20120220
  25. ADALAT CR [Concomitant]
     Dosage: 40 MG, QD
     Route: 048
     Dates: start: 20120306, end: 20120402
  26. ADALAT CR [Concomitant]
     Dosage: 40 MG, QD
     Route: 048
     Dates: start: 20120410
  27. ZYLORIC [Concomitant]
     Indication: PROPHYLAXIS
     Dosage: 100 MG, QD
     Route: 048
     Dates: start: 20120228
  28. GASTER D [Concomitant]
     Indication: PROPHYLAXIS
     Dosage: 20 MG, QD
     Route: 048
     Dates: start: 20120321, end: 20120403
  29. VITANEURIN (FURSULTIAMINE (+) HYDROXOCOBALAMIN ACETATE (+) PYRIDOXAL P [Concomitant]
     Indication: PROPHYLAXIS
     Dosage: 100 MG, QD, FORMULATION: POR
     Route: 048
     Dates: end: 20120220
  30. VITANEURIN (FURSULTIAMINE (+) HYDROXOCOBALAMIN ACETATE (+) PYRIDOXAL P [Concomitant]
     Dosage: 100 MG, QD
     Route: 048
     Dates: start: 20120306, end: 20120402
  31. VITANEURIN (FURSULTIAMINE (+) HYDROXOCOBALAMIN ACETATE (+) PYRIDOXAL P [Concomitant]
     Dosage: 100 MG, QD
     Route: 048
     Dates: start: 20120410

REACTIONS (1)
  - Rash [Recovered/Resolved]
